FAERS Safety Report 12914154 (Version 1)
Quarter: 2016Q4

REPORT INFORMATION
  Report Type: Spontaneous
  Country: US (occurrence: US)
  Receive Date: 20161106
  Receipt Date: 20161106
  Transmission Date: 20170207
  Serious: No
  Sender: FDA-Public Use
  Company Number: US-ASTRAZENECA-2016SF11094

PATIENT
  Sex: Male

DRUGS (6)
  1. CRESTOR [Suspect]
     Active Substance: ROSUVASTATIN CALCIUM
     Indication: BLOOD CHOLESTEROL INCREASED
     Route: 048
     Dates: start: 2003
  2. CRESTOR [Suspect]
     Active Substance: ROSUVASTATIN CALCIUM
     Indication: BLOOD CHOLESTEROL INCREASED
     Route: 048
     Dates: start: 2016
  3. RESTAYSIS [Concomitant]
     Indication: EYE DISORDER
     Dosage: TWO TIMES A DAY
     Route: 001
  4. CRESTOR [Suspect]
     Active Substance: ROSUVASTATIN CALCIUM
     Indication: BLOOD CHOLESTEROL INCREASED
     Dosage: 10MG, DAILY, GENERIC
     Route: 065
     Dates: start: 2016, end: 2016
  5. ANOTHER EYE DROP [Concomitant]
     Indication: EYE DISORDER
     Dosage: AS REQUIRED
     Route: 001
  6. FISH OIL [Concomitant]
     Active Substance: FISH OIL
     Route: 048

REACTIONS (4)
  - Cataract [Unknown]
  - Dry eye [Unknown]
  - Pain [Recovered/Resolved]
  - Eye disorder [Unknown]
